FAERS Safety Report 8760788 (Version 2)
Quarter: 2012Q4

REPORT INFORMATION
  Report Type: 
  Country: US (occurrence: US)
  Receive Date: 20120830
  Receipt Date: 20120830
  Transmission Date: 20130627
  Serious: No
  Sender: FDA-Public Use
  Company Number: PHEH2012US013356

PATIENT
  Age: 49 Year
  Sex: Female
  Weight: 169 kg

DRUGS (2)
  1. TASIGNA [Suspect]
     Indication: CHRONIC MYELOID LEUKAEMIA
     Dosage: 150 mg, BID
     Route: 048
     Dates: start: 20120301
  2. LEVOTHYROXINE [Concomitant]
     Dosage: 75 mg, daily

REACTIONS (1)
  - Rash [Recovering/Resolving]
